FAERS Safety Report 17999394 (Version 2)
Quarter: 2020Q3

REPORT INFORMATION
  Report Type: Report from Study
  Country: MX (occurrence: MX)
  Receive Date: 20200709
  Receipt Date: 20200810
  Transmission Date: 20201103
  Serious: Yes (Other)
  Sender: FDA-Public Use
  Company Number: NVSC2020MX189827

PATIENT
  Sex: Female

DRUGS (1)
  1. EXELON [Suspect]
     Active Substance: RIVASTIGMINE TARTRATE
     Indication: PRODUCT USED FOR UNKNOWN INDICATION
     Dosage: UNK
     Route: 062

REACTIONS (6)
  - Oropharyngeal pain [Unknown]
  - Diarrhoea [Recovering/Resolving]
  - Oropharyngeal discomfort [Unknown]
  - Pneumonia [Recovering/Resolving]
  - Somnolence [Recovering/Resolving]
  - COVID-19 [Recovering/Resolving]
